FAERS Safety Report 9440497 (Version 1)
Quarter: 2013Q3

REPORT INFORMATION
  Report Type: Spontaneous
  Country: US (occurrence: None)
  Receive Date: 20130801
  Receipt Date: 20130801
  Transmission Date: 20140515
  Serious: Yes (Death)
  Sender: FDA-Public Use
  Company Number: ADR-2013UNK133

PATIENT
  Age: 273 Day
  Sex: Male
  Weight: 2660 kg

DRUGS (4)
  1. LAMIVUDINE + ZIDOVUDINE [Suspect]
     Indication: ACQUIRED IMMUNODEFICIENCY SYNDROME
     Dosage: 1 COURSE + UNKNOWN
     Dates: start: 20120810, end: 20130621
  2. KALETRA, ALUVIA, LPV/R-4 TABS/DAY [Concomitant]
  3. ZIDOVUDINE - 600 MG/DAY [Concomitant]
  4. LAMIVUDINE - 300 MG/DAY [Concomitant]

REACTIONS (7)
  - Arnold-Chiari malformation [None]
  - Neural tube defect [None]
  - Abortion induced [None]
  - Maternal drugs affecting foetus [None]
  - Anencephaly [None]
  - Spina bifida [None]
  - Hydrocephalus [None]
